FAERS Safety Report 8301334-0 (Version None)
Quarter: 2012Q2

REPORT INFORMATION
  Report Type: 
  Country: None (occurrence: None)
  Receive Date: 20120420
  Receipt Date: 20120413
  Transmission Date: 20120825
  Serious: Yes (Hospitalization)
  Sender: FDA-Public Use
  Company Number: JP-VERTEX PHARMACEUTICALS INC.-AE-2012-005507

PATIENT
  Age: 54 Year
  Sex: Female

DRUGS (13)
  1. RIBAVIRIN [Concomitant]
     Route: 048
     Dates: start: 20120227, end: 20120302
  2. RIBAVIRIN [Concomitant]
     Route: 048
     Dates: start: 20120402
  3. LENDORMIN D [Concomitant]
     Route: 048
     Dates: start: 20120111, end: 20120116
  4. PEGINTERFERON ALFA-2B [Concomitant]
     Indication: HEPATITIS C
     Route: 051
     Dates: start: 20120110, end: 20120227
  5. RABEPRAZOLE SODIUM [Concomitant]
     Route: 048
     Dates: start: 20120119, end: 20120205
  6. PEGINTERFERON ALFA-2B [Concomitant]
     Route: 051
     Dates: start: 20120402
  7. LOXONIN [Concomitant]
     Route: 048
     Dates: start: 20120111, end: 20120116
  8. TELAVIC (TELAPREVIR) [Suspect]
     Route: 048
     Dates: start: 20120305, end: 20120401
  9. RIBAVIRIN [Concomitant]
     Indication: HEPATITIS C
     Route: 048
     Dates: start: 20120110, end: 20120226
  10. PEGINTERFERON ALFA-2B [Concomitant]
     Route: 051
     Dates: start: 20120312, end: 20120326
  11. DOGMATYL [Concomitant]
     Route: 048
     Dates: start: 20120111, end: 20120212
  12. DOGMATYL [Concomitant]
     Route: 048
  13. TELAVIC (TELAPREVIR) [Suspect]
     Indication: HEPATITIS C
     Route: 048
     Dates: start: 20120110, end: 20120304

REACTIONS (3)
  - RENAL IMPAIRMENT [None]
  - ANAEMIA [None]
  - DEPRESSION [None]
